FAERS Safety Report 25794033 (Version 2)
Quarter: 2025Q4

REPORT INFORMATION
  Report Type: Spontaneous
  Country: EU (occurrence: EU)
  Receive Date: 20250912
  Receipt Date: 20251020
  Transmission Date: 20260118
  Serious: Yes (Other)
  Sender: SAMSUNG BIOEPIS
  Company Number: None

PATIENT
  Age: 77 Year
  Sex: Female

DRUGS (2)
  1. IMRALDI [Suspect]
     Active Substance: ADALIMUMAB
     Indication: Rheumatoid arthritis
     Route: 058
     Dates: start: 20250507, end: 20250730
  2. IMRALDI [Suspect]
     Active Substance: ADALIMUMAB
     Dosage: 40 MG, 1 VIAL SUBCUTANEOUSLY EVERY 14 DAYS;
     Route: 058

REACTIONS (3)
  - Rheumatoid arthritis [Not Recovered/Not Resolved]
  - Pain [Not Recovered/Not Resolved]
  - Drug ineffective [Not Recovered/Not Resolved]

NARRATIVE: CASE EVENT DATE: 20250628
